FAERS Safety Report 7257839 (Version 4)
Quarter: 2015Q1

REPORT INFORMATION
  Report Type: Spontaneous
  Country: US (occurrence: US)
  Receive Date: 20100127
  Receipt Date: 20150323
  Transmission Date: 20150721
  Serious: Yes (Hospitalization, Disabling, Other)
  Sender: FDA-Public Use
  Company Number: US-BAYER-201012253NA

PATIENT
  Age: 28 Year
  Sex: Female
  Weight: 89 kg

DRUGS (15)
  1. YAZ [Suspect]
     Active Substance: DROSPIRENONE\ETHINYL ESTRADIOL
     Dosage: UNK
     Dates: start: 200306, end: 200503
  2. PROPOXYPHENE NAPSYLATE [Concomitant]
     Active Substance: PROPOXYPHENE NAPSYLATE
  3. ALEVE [Concomitant]
     Active Substance: NAPROXEN SODIUM
  4. ALLEGRA [Concomitant]
     Active Substance: FEXOFENADINE HYDROCHLORIDE
     Indication: MULTIPLE ALLERGIES
     Dosage: UNK
     Dates: start: 2004, end: 2005
  5. DECADRON [Concomitant]
     Active Substance: DEXAMETHASONE
     Route: 042
  6. ANTIVERT [Concomitant]
     Active Substance: MECLIZINE HYDROCHLORIDE
     Dosage: 25 MG, UNK
  7. MANNITOL. [Concomitant]
     Active Substance: MANNITOL
  8. YASMIN [Suspect]
     Active Substance: DROSPIRENONE\ETHINYL ESTRADIOL
     Indication: POLYCYSTIC OVARIES
  9. CEPHALEXIN. [Concomitant]
     Active Substance: CEPHALEXIN
     Dosage: UNK
  10. YASMIN [Suspect]
     Active Substance: DROSPIRENONE\ETHINYL ESTRADIOL
     Indication: MENSTRUATION IRREGULAR
  11. MAGNESIUM [Concomitant]
     Active Substance: MAGNESIUM
  12. GENTAMICIN. [Concomitant]
     Active Substance: GENTAMICIN
  13. YASMIN [Suspect]
     Active Substance: DROSPIRENONE\ETHINYL ESTRADIOL
     Indication: CONTRACEPTION
     Dosage: UNK
     Dates: start: 2002, end: 20050315
  14. ZOFRAN [Concomitant]
     Active Substance: ONDANSETRON HYDROCHLORIDE
  15. AMPICILLIN [Concomitant]
     Active Substance: AMPICILLIN

REACTIONS (13)
  - Vertigo [Unknown]
  - Cranial nerve disorder [None]
  - Hemiplegia [Unknown]
  - Thrombectomy [Unknown]
  - Cognitive disorder [Unknown]
  - Impaired work ability [Unknown]
  - Cerebrovascular accident [Unknown]
  - Hemiparesis [Unknown]
  - Quality of life decreased [None]
  - Dysphagia [Unknown]
  - Pain [Unknown]
  - Gait disturbance [Unknown]
  - Anxiety [None]

NARRATIVE: CASE EVENT DATE: 20050303
